FAERS Safety Report 21628077 (Version 4)
Quarter: 2025Q4

REPORT INFORMATION
  Report Type: Report from Study
  Country: US (occurrence: US)
  Receive Date: 20221122
  Receipt Date: 20251219
  Transmission Date: 20260117
  Serious: Yes (Other)
  Sender: PFIZER
  Company Number: US-PFIZER INC-PV202200106814

PATIENT
  Age: 75 Year
  Sex: Female

DRUGS (1)
  1. XELJANZ XR [Suspect]
     Active Substance: TOFACITINIB CITRATE
     Dosage: 11 MG, 1X/DAY
     Route: 048

REACTIONS (6)
  - Lumbar vertebral fracture [Unknown]
  - Back disorder [Unknown]
  - Arthritis [Unknown]
  - Mobility decreased [Unknown]
  - Pain in extremity [Recovering/Resolving]
  - Condition aggravated [Unknown]
